FAERS Safety Report 7248862-7 (Version None)
Quarter: 2011Q1

REPORT INFORMATION
  Report Type: 
  Country: None (occurrence: None)
  Receive Date: 20110128
  Receipt Date: 20100601
  Transmission Date: 20110831
  Serious: Yes (Hospitalization, Other)
  Sender: FDA-Public Use
  Company Number: US-BAYER-200938401NA

PATIENT
  Sex: Female
  Weight: 67.12 kg

DRUGS (5)
  1. OCELLA [Suspect]
     Indication: CONTRACEPTION
     Route: 048
     Dates: start: 20080101, end: 20100215
  2. YAZ [Suspect]
     Indication: CONTRACEPTION
     Route: 048
     Dates: start: 20080101, end: 20100215
  3. ACETAMINOPHEN AND HYDROCODONE BITARTRATE [Concomitant]
  4. IBUPROFEN [Concomitant]
     Indication: PAIN
  5. YASMIN [Suspect]
     Indication: CONTRACEPTION

REACTIONS (9)
  - ABDOMINAL PAIN UPPER [None]
  - CHOLELITHIASIS [None]
  - JAUNDICE [None]
  - CHOLECYSTITIS ACUTE [None]
  - BILE DUCT STONE [None]
  - PANCREATITIS ACUTE [None]
  - NAUSEA [None]
  - VOMITING [None]
  - BILE DUCT OBSTRUCTION [None]
